FAERS Safety Report 6290673-3 (Version None)
Quarter: 2009Q3

REPORT INFORMATION
  Report Type: 
  Country: None (occurrence: None)
  Receive Date: 20090730
  Receipt Date: 20090723
  Transmission Date: 20100115
  Serious: Yes (Other)
  Sender: FDA-Public Use
  Company Number: PHHY2009JP26414

PATIENT
  Sex: Female
  Weight: 27 kg

DRUGS (13)
  1. TEGRETOL [Suspect]
     Indication: EPILEPSY
     Dosage: 60 MG/DAY
     Route: 048
     Dates: start: 20090225, end: 20090306
  2. TEGRETOL [Suspect]
     Dosage: 120 MG/DAY
     Route: 048
     Dates: start: 20090306, end: 20090311
  3. DEPAKENE [Suspect]
     Indication: EPILEPSY
     Dosage: 600 MG, BID
     Route: 048
     Dates: start: 20090120
  4. DEPAKENE [Suspect]
     Dosage: 400 MG, BID
     Route: 048
     Dates: start: 20090423, end: 20090507
  5. DEPAKENE [Suspect]
     Dosage: 200 MG DAILY
     Route: 048
     Dates: start: 20090430, end: 20090514
  6. DEPAKENE [Suspect]
     Dosage: 100 MG, BID
     Dates: start: 20090507, end: 20090603
  7. MEPTIN [Concomitant]
  8. EXCEGRAN [Concomitant]
     Indication: EPILEPSY
     Dosage: 50 MG, BID
     Route: 048
     Dates: start: 20090416
  9. EXCEGRAN [Concomitant]
     Dosage: 80 MG, BID
     Route: 048
     Dates: start: 20090423
  10. EXCEGRAN [Concomitant]
     Dosage: 120 MG, BID
     Route: 048
     Dates: start: 20090430
  11. EXCEGRAN [Concomitant]
     Dosage: 160 MG, BID
     Route: 048
     Dates: start: 20090507
  12. EXCEGRAN [Concomitant]
     Dosage: 100 MG, BID
     Route: 048
     Dates: start: 20090603
  13. EXCEGRAN [Concomitant]
     Dosage: 50 MG, BID
     Route: 048
     Dates: start: 20090607, end: 20090615

REACTIONS (16)
  - HEADACHE [None]
  - IMMUNOGLOBULINS DECREASED [None]
  - LEUKOPENIA [None]
  - LYMPHADENITIS [None]
  - LYMPHADENOPATHY [None]
  - LYMPHOCYTE STIMULATION TEST POSITIVE [None]
  - OROPHARYNGEAL PAIN [None]
  - PLATELET COUNT DECREASED [None]
  - PRURIGO [None]
  - PYREXIA [None]
  - RASH [None]
  - SWELLING [None]
  - THROMBOCYTOPENIA [None]
  - UPPER RESPIRATORY TRACT INFLAMMATION [None]
  - URTICARIA [None]
  - WHITE BLOOD CELL COUNT DECREASED [None]
